FAERS Safety Report 5159164-7 (Version None)
Quarter: 2006Q4

REPORT INFORMATION
  Report Type: 
  Country: None (occurrence: None)
  Receive Date: 20061116
  Receipt Date: 20061113
  Transmission Date: 20070319
  Serious: Yes (Life-Threatening)
  Sender: FDA-Public Use
  Company Number: FRWYE512513NOV06

PATIENT
  Sex: Female

DRUGS (5)
  1. EFFEXOR XR [Suspect]
     Indication: DEPRESSION
     Dosage: 75 MG TOTAL DAILY TRANSPLACENTAL
     Route: 064
     Dates: start: 20020415, end: 20060410
  2. AUGMENTIN '125' [Suspect]
     Dosage: TRANSPLACENTAL
     Route: 064
     Dates: start: 20060301, end: 20060308
  3. NICOTINE [Suspect]
     Indication: TOBACCO ABUSE
     Dosage: TRANSPLACENTAL
     Route: 064
     Dates: start: 20060814, end: 20060904
  4. PREDNISOLONE [Suspect]
     Dosage: TRANSPLACENTAL
     Route: 064
     Dates: start: 20060313, end: 20060321
  5. TROSPIUM CHLORIDE (TROSPIUM CHLORIDE) [Suspect]
     Dosage: TRANSPLACENTAL
     Route: 064
     Dates: start: 20051015, end: 20060410

REACTIONS (5)
  - CONGENITAL TRICUSPID VALVE ATRESIA [None]
  - DRUG EXPOSURE DURING PREGNANCY [None]
  - FOETAL GROWTH RETARDATION [None]
  - PULMONARY ARTERY STENOSIS CONGENITAL [None]
  - VENTRICULAR SEPTAL DEFECT [None]
